FAERS Safety Report 7972634-9 (Version None)
Quarter: 2011Q4

REPORT INFORMATION
  Report Type: 
  Country: None (occurrence: None)
  Receive Date: 20111122
  Receipt Date: 20110707
  Transmission Date: 20120403
  Serious: No
  Sender: FDA-Public Use
  Company Number: PHHY2011US42743

PATIENT
  Age: 63 Year
  Sex: Female

DRUGS (16)
  1. ROBAXIN [Concomitant]
  2. TRAMADOL HCL [Concomitant]
  3. BELLADONNA ALKALOIDS (BELLADONNA ALKALOIDS) [Concomitant]
  4. ASPIRIN [Concomitant]
  5. CYMBALTA [Concomitant]
  6. FLOMAX [Concomitant]
  7. VYTORIN [Concomitant]
  8. NTM [Concomitant]
  9. MOBIC [Concomitant]
  10. SIMVASTATIN [Concomitant]
  11. GILENYA [Suspect]
     Indication: MULTIPLE SCLEROSIS
     Dosage: 0.5 MG, QD, ORAL
     Route: 048
     Dates: start: 20110223
  12. TRENTAL [Concomitant]
  13. METOPROLOL TARTRATE [Concomitant]
  14. BACLOFEN [Concomitant]
  15. ALPRAZOLAM [Concomitant]
  16. LYRICA [Concomitant]

REACTIONS (1)
  - OROPHARYNGEAL PAIN [None]
